FAERS Safety Report 5030536-4 (Version None)
Quarter: 2006Q2

REPORT INFORMATION
  Report Type: 
  Country: None (occurrence: None)
  Receive Date: 20060615
  Receipt Date: 20060602
  Transmission Date: 20061013
  Serious: Yes (Hospitalization)
  Sender: FDA-Public Use
  Company Number: 2006072444

PATIENT
  Sex: 0

DRUGS (3)
  1. SERTRALINE [Suspect]
     Indication: ILL-DEFINED DISORDER
  2. ASPIRIN [Suspect]
     Indication: ILL-DEFINED DISORDER
  3. CITALOPRAM HYDROBROMIDE [Suspect]
     Indication: ILL-DEFINED DISORDER

REACTIONS (1)
  - GASTROINTESTINAL HAEMORRHAGE [None]
